FAERS Safety Report 24981263 (Version 1)
Quarter: 2025Q1

REPORT INFORMATION
  Report Type: Other
  Country: CA (occurrence: CA)
  Receive Date: 20250218
  Receipt Date: 20250218
  Transmission Date: 20250408
  Serious: Yes (Other)
  Sender: GLENMARK
  Company Number: CA-GLENMARK PHARMACEUTICALS-2025GMK097946

PATIENT

DRUGS (2)
  1. GABAPENTIN [Suspect]
     Active Substance: GABAPENTIN
     Indication: Neuralgia
     Route: 065
  2. TERIFLUNOMIDE [Suspect]
     Active Substance: TERIFLUNOMIDE
     Indication: Relapsing-remitting multiple sclerosis
     Route: 048

REACTIONS (5)
  - Discomfort [Not Recovered/Not Resolved]
  - Condition aggravated [Not Recovered/Not Resolved]
  - Spinal fusion surgery [Not Recovered/Not Resolved]
  - Asthenia [Not Recovered/Not Resolved]
  - Off label use [Unknown]
